FAERS Safety Report 5397705-5 (Version None)
Quarter: 2007Q3

REPORT INFORMATION
  Report Type: 
  Country: None (occurrence: None)
  Receive Date: 20070726
  Receipt Date: 20070718
  Transmission Date: 20080115
  Serious: Yes (Hospitalization)
  Sender: FDA-Public Use
  Company Number: DE-AVENTIS-200711485DE

PATIENT
  Age: 15 Year
  Sex: Female
  Weight: 80 kg

DRUGS (2)
  1. TELFAST                            /01314201/ [Suspect]
     Route: 048
     Dates: start: 20070605, end: 20070606
  2. CORTISONE OINTMENT [Suspect]
     Dosage: DOSE: NOT REPORTED
     Route: 061
     Dates: start: 20070605, end: 20070605

REACTIONS (9)
  - ATRIOVENTRICULAR BLOCK [None]
  - BRADYCARDIA [None]
  - CARDIAC ARREST [None]
  - CONVULSION [None]
  - DIZZINESS [None]
  - ENURESIS [None]
  - NAUSEA [None]
  - OFF LABEL USE [None]
  - SYNCOPE [None]
